FAERS Safety Report 7701416-8 (Version None)
Quarter: 2011Q3

REPORT INFORMATION
  Report Type: 
  Country: None (occurrence: None)
  Receive Date: 20110822
  Receipt Date: 20110811
  Transmission Date: 20111222
  Serious: Yes (Other)
  Sender: FDA-Public Use
  Company Number: JP-JNJFOC-20110300057

PATIENT
  Sex: Female
  Weight: 71 kg

DRUGS (6)
  1. DOXIL [Suspect]
     Indication: OVARIAN CANCER RECURRENT
     Dosage: ADMINISTRATION RATE WAS UNDER 1 MG/MIN
     Route: 042
     Dates: start: 20110210, end: 20110210
  2. ADRENOCORTICOTROPHIC HORMONE [Concomitant]
     Indication: PROPHYLAXIS
     Route: 065
     Dates: start: 20110210, end: 20110210
  3. METHYCOBAL [Concomitant]
     Indication: NEUROPATHY PERIPHERAL
     Route: 048
  4. LASIX [Concomitant]
     Indication: RENAL FAILURE
     Route: 048
     Dates: start: 20101204
  5. METHYCOBAL [Concomitant]
     Route: 048
  6. ALDACTONE [Concomitant]
     Indication: RENAL FAILURE
     Route: 048
     Dates: start: 20110128, end: 20110201

REACTIONS (2)
  - INFUSION RELATED REACTION [None]
  - ASTHMA [None]
